FAERS Safety Report 4653804-4 (Version None)
Quarter: 2005Q2

REPORT INFORMATION
  Report Type: 
  Country: None (occurrence: None)
  Receive Date: 20050404
  Receipt Date: 20050208
  Transmission Date: 20051028
  Serious: Yes (Other)
  Sender: FDA-Public Use
  Company Number: USA050188912

PATIENT
  Age: 57 Year
  Sex: Male
  Weight: 96 kg

DRUGS (4)
  1. CYMBALTA [Suspect]
     Indication: MAJOR DEPRESSION
     Dosage: 60 MG DAY
     Dates: start: 20041101
  2. WELLBUTRIN [Concomitant]
  3. ZEBETA [Concomitant]
  4. LIPITOR [Concomitant]

REACTIONS (2)
  - ACUTE MYOCARDIAL INFARCTION [None]
  - DRUG INTERACTION [None]
